FAERS Safety Report 17719220 (Version 2)
Quarter: 2020Q2

REPORT INFORMATION
  Report Type: Spontaneous
  Country: US (occurrence: BR)
  Receive Date: 20200428
  Receipt Date: 20200619
  Transmission Date: 20200714
  Serious: Yes (Other)
  Sender: FDA-Public Use
  Company Number: BR-BIOMARINAP-BR-2020-129846

PATIENT
  Age: 12 Year
  Sex: Male
  Weight: 17 kg

DRUGS (2)
  1. ALDURAZYME [Suspect]
     Active Substance: LARONIDASE
     Indication: MUCOPOLYSACCHARIDOSIS
     Dosage: 8 DOSAGE FORM, QW
     Route: 041
     Dates: start: 20080101, end: 2018
  2. ALDURAZYME [Suspect]
     Active Substance: LARONIDASE
     Dosage: 8 DOSAGE FORM
     Route: 041
     Dates: start: 2018

REACTIONS (8)
  - Dehydration [Recovered/Resolved]
  - Pyrexia [Not Recovered/Not Resolved]
  - Increased bronchial secretion [Not Recovered/Not Resolved]
  - Rhinorrhoea [Not Recovered/Not Resolved]
  - Influenza [Not Recovered/Not Resolved]
  - Poor venous access [Unknown]
  - Vein rupture [Recovered/Resolved]
  - Off label use [Unknown]

NARRATIVE: CASE EVENT DATE: 20190528
